FAERS Safety Report 5361281-3 (Version None)
Quarter: 2007Q2

REPORT INFORMATION
  Report Type: 
  Country: None (occurrence: None)
  Receive Date: 20070614
  Receipt Date: 20070604
  Transmission Date: 20071010
  Serious: Yes (Other)
  Sender: FDA-Public Use
  Company Number: GXKR2007DE04855

PATIENT
  Sex: Male

DRUGS (1)
  1. METFORMIN SANDOZ (NGX) (METFORMIN) UNKNOWN, 850MG [Suspect]
     Dosage: 850 MG, ORAL
     Route: 048

REACTIONS (1)
  - HYPERTENSION [None]
